FAERS Safety Report 10025043 (Version 1)
Quarter: 2014Q1

REPORT INFORMATION
  Report Type: Spontaneous
  Country: US (occurrence: None)
  Receive Date: 20140304
  Receipt Date: 20140304
  Transmission Date: 20141002
  Serious: Yes (Hospitalization)
  Sender: FDA-Public Use
  Company Number: RB-49058-2013

PATIENT
  Age: 33 Year
  Sex: Male

DRUGS (1)
  1. MAKENA [Suspect]
     Indication: MATERNAL EXPOSURE DURING PREGNANCY
     Dates: start: 2013

REACTIONS (3)
  - Drug withdrawal syndrome [None]
  - Influenza like illness [None]
  - Substance abuse [None]
